FAERS Safety Report 21997871 (Version 1)
Quarter: 2023Q1

REPORT INFORMATION
  Report Type: Spontaneous
  Country: CN (occurrence: CN)
  Receive Date: 20230216
  Receipt Date: 20230216
  Transmission Date: 20230418
  Serious: Yes (Hospitalization, Other)
  Sender: FDA-Public Use
  Company Number: CN-ORGANON-O2302CHN000834

PATIENT
  Age: 73 Year
  Sex: Female
  Weight: 50 kg

DRUGS (6)
  1. EZETIMIBE [Suspect]
     Active Substance: EZETIMIBE
     Indication: Lung neoplasm malignant
     Dosage: 10 MILLIGRAM (MG), DAILY (QD)
     Route: 048
     Dates: start: 20220705, end: 20220718
  2. EZETIMIBE [Suspect]
     Active Substance: EZETIMIBE
     Indication: Cerebral infarction
  3. EZETIMIBE [Suspect]
     Active Substance: EZETIMIBE
     Indication: Hypertension
  4. EZETIMIBE [Suspect]
     Active Substance: EZETIMIBE
     Indication: Dyslipidaemia
  5. EZETIMIBE [Suspect]
     Active Substance: EZETIMIBE
     Indication: Hepatic failure
  6. ROSUVASTATIN CALCIUM [Suspect]
     Active Substance: ROSUVASTATIN CALCIUM
     Indication: Hyperlipidaemia
     Dosage: 5 MILLIGRAM, QD
     Route: 048
     Dates: start: 20220705, end: 20220718

REACTIONS (3)
  - Liver injury [Recovering/Resolving]
  - Transaminases increased [Recovering/Resolving]
  - Product use in unapproved indication [Unknown]

NARRATIVE: CASE EVENT DATE: 20220705
